FAERS Safety Report 5306679-4 (Version None)
Quarter: 2007Q1

REPORT INFORMATION
  Report Type: 
  Country: None (occurrence: None)
  Receive Date: 20070201
  Receipt Date: 20061114
  Transmission Date: 20070707
  Serious: No
  Sender: FDA-Public Use
  Company Number: 2006PV025235

PATIENT
  Age: 65 Year
  Sex: Female
  Weight: 77.1115 kg

DRUGS (7)
  1. BYETTA [Suspect]
     Indication: DIABETES MELLITUS NON-INSULIN-DEPENDENT
     Dosage: 5 MCG;BID;SC
     Route: 058
     Dates: start: 20061111
  2. GLIPIZIDE [Concomitant]
  3. ACTOS [Concomitant]
  4. CAPTOPRIL [Concomitant]
  5. AMITRIPTYLINE HCL [Concomitant]
  6. METFORMIN HCL [Concomitant]
  7. WARFARIN [Concomitant]

REACTIONS (9)
  - BLOOD GLUCOSE DECREASED [None]
  - BLOOD GLUCOSE INCREASED [None]
  - DIZZINESS [None]
  - ERYTHEMA [None]
  - HEADACHE [None]
  - HOT FLUSH [None]
  - INJECTION SITE BRUISING [None]
  - RASH [None]
  - SOMNOLENCE [None]
